FAERS Safety Report 9224373 (Version 1)
Quarter: 2013Q2

REPORT INFORMATION
  Report Type: Spontaneous
  Country: US (occurrence: None)
  Receive Date: 20130409
  Receipt Date: 20130409
  Transmission Date: 20140414
  Serious: Yes (Life-Threatening, Other)
  Sender: FDA-Public Use
  Company Number: None

PATIENT
  Age: 73 Year
  Sex: Female
  Weight: 86.18 kg

DRUGS (1)
  1. HUMALOG [Suspect]
     Indication: DIABETES MELLITUS
     Dosage: MORNING ONLY
     Dates: start: 20130327, end: 20130328

REACTIONS (6)
  - Pruritus [None]
  - Discomfort [None]
  - Local swelling [None]
  - Local swelling [None]
  - Abdominal distension [None]
  - Abdominal pain upper [None]
